FAERS Safety Report 16420401 (Version 6)
Quarter: 2020Q2

REPORT INFORMATION
  Report Type: Spontaneous
  Country: US (occurrence: US)
  Receive Date: 20190612
  Receipt Date: 20200413
  Transmission Date: 20200713
  Serious: No
  Sender: FDA-Public Use
  Company Number: US-PFIZER INC-2019250730

PATIENT
  Age: 50 Year
  Sex: Female

DRUGS (2)
  1. PREMARIN [Suspect]
     Active Substance: ESTROGENS, CONJUGATED
     Dosage: UNK (STRENGTH: 0.625 MG/G, QUANTITY FOR 90 DAYS: 3 OZ, 1)
  2. DEPO-ESTRADIOL [Suspect]
     Active Substance: ESTRADIOL CYPIONATE
     Dosage: UNK(STRENGTH: 5 MG VIAL, QUANTITY FOR 90 DAYS: 1 CC/MONTH, 1)

REACTIONS (5)
  - Illness anxiety disorder [Unknown]
  - Post-traumatic stress disorder [Unknown]
  - Nervousness [Unknown]
  - Vulvovaginal mycotic infection [Unknown]
  - Anxiety disorder [Unknown]
